FAERS Safety Report 5402361-3 (Version None)
Quarter: 2007Q3

REPORT INFORMATION
  Report Type: 
  Country: None (occurrence: None)
  Receive Date: 20070730
  Receipt Date: 20070730
  Transmission Date: 20080115
  Serious: Yes (Other)
  Sender: FDA-Public Use
  Company Number: None

PATIENT
  Age: 64 Year
  Sex: Female
  Weight: 90.7194 kg

DRUGS (1)
  1. TUSSIN FOR CHILDREN AND ADULTS PERRIGO [Suspect]
     Indication: UPPER RESPIRATORY TRACT CONGESTION
     Dosage: ADULT DOSE ONE PO
     Route: 048
     Dates: start: 20070719, end: 20070719

REACTIONS (11)
  - ARTHRALGIA [None]
  - BLADDER PAIN [None]
  - BLOOD PRESSURE INCREASED [None]
  - CHEST PAIN [None]
  - DYSPNOEA [None]
  - HEADACHE [None]
  - MALAISE [None]
  - NASAL DISCOMFORT [None]
  - ORAL DISCOMFORT [None]
  - ORAL MUCOSAL BLISTERING [None]
  - RENAL PAIN [None]
